FAERS Safety Report 15864938 (Version 1)
Quarter: 2019Q1

REPORT INFORMATION
  Report Type: Report from Study
  Country: JP (occurrence: JP)
  Receive Date: 20190124
  Receipt Date: 20190124
  Transmission Date: 20190417
  Serious: Yes (Life-Threatening, Other)
  Sender: FDA-Public Use
  Company Number: JP-MYLANLABS-2019M1006781

PATIENT
  Age: 62 Year
  Sex: Female
  Weight: 51.6 kg

DRUGS (2)
  1. CYTARABINE. [Suspect]
     Active Substance: CYTARABINE
     Indication: ACUTE MYELOID LEUKAEMIA
     Dosage: 150.6 MILLIGRAM, QD
     Route: 041
     Dates: start: 20181023, end: 20181128
  2. DAUNORUBICIN [Suspect]
     Active Substance: DAUNORUBICIN
     Indication: ACUTE MYELOID LEUKAEMIA
     Dosage: 90.36 MILLIGRAM, QD
     Route: 041
     Dates: start: 20181023, end: 20181124

REACTIONS (1)
  - Septic shock [Not Recovered/Not Resolved]

NARRATIVE: CASE EVENT DATE: 20181226
